FAERS Safety Report 6441591-9 (Version None)
Quarter: 2009Q4

REPORT INFORMATION
  Report Type: 
  Country: None (occurrence: None)
  Receive Date: 20091116
  Receipt Date: 20091102
  Transmission Date: 20100525
  Serious: Yes (Hospitalization)
  Sender: FDA-Public Use
  Company Number: FR-JNJFOC-20091104157

PATIENT
  Sex: Female

DRUGS (7)
  1. CONTRAMAL [Suspect]
     Indication: ABDOMINAL PAIN UPPER
     Route: 048
  2. DI-ANTALVIC [Suspect]
     Indication: RADICULAR PAIN
     Route: 048
  3. DOLIPRANE [Concomitant]
     Indication: PAIN
  4. STILNOX [Concomitant]
  5. SPIRIVA [Concomitant]
     Indication: CHRONIC OBSTRUCTIVE PULMONARY DISEASE
     Route: 055
  6. ROPINIROLE HYDROCHLORIDE [Concomitant]
     Indication: RESTLESS LEGS SYNDROME
  7. MYOLASTAM [Concomitant]

REACTIONS (1)
  - HEPATIC ENCEPHALOPATHY [None]
